FAERS Safety Report 10777732 (Version 1)
Quarter: 2015Q1

REPORT INFORMATION
  Report Type: Spontaneous
  Country: US (occurrence: US)
  Receive Date: 20150209
  Receipt Date: 20150209
  Transmission Date: 20150721
  Serious: No
  Sender: FDA-Public Use
  Company Number: US-GLAXOSMITHKLINE-US2014GSK049649

PATIENT
  Age: 56 Year
  Sex: Female

DRUGS (2)
  1. GLIPIZIDE. [Concomitant]
     Active Substance: GLIPIZIDE
     Indication: DIABETES MELLITUS
  2. PROMACTA [Suspect]
     Active Substance: ELTROMBOPAG OLAMINE
     Indication: IMMUNE THROMBOCYTOPENIC PURPURA
     Dosage: 25 MG, U
     Route: 048
     Dates: start: 20140624

REACTIONS (4)
  - Headache [Unknown]
  - Blood glucose increased [Unknown]
  - Abdominal pain [Unknown]
  - Malaise [Unknown]

NARRATIVE: CASE EVENT DATE: 201412
